FAERS Safety Report 10252986 (Version 1)
Quarter: 2014Q2

REPORT INFORMATION
  Report Type: Spontaneous
  Country: IT (occurrence: IT)
  Receive Date: 20140623
  Receipt Date: 20140623
  Transmission Date: 20141212
  Serious: Yes (Hospitalization)
  Sender: FDA-Public Use
  Company Number: IT-TEVA-488963ISR

PATIENT
  Age: 26 Year
  Sex: Female

DRUGS (1)
  1. AMOXICILLIN + CLAVULANIC ACID [Suspect]
     Indication: PNEUMONITIS
     Dosage: 2 G TOTAL
     Route: 048
     Dates: start: 20140102, end: 20140102

REACTIONS (2)
  - Tachycardia [Recovered/Resolved]
  - Vomiting [Recovered/Resolved]
